FAERS Safety Report 10080069 (Version 1)
Quarter: 2014Q2

REPORT INFORMATION
  Report Type: Spontaneous
  Country: US (occurrence: US)
  Receive Date: 20140415
  Receipt Date: 20140415
  Transmission Date: 20141212
  Serious: No
  Sender: FDA-Public Use
  Company Number: US-009507513-1403USA003618

PATIENT
  Age: 73 Year
  Sex: Male
  Weight: 72.56 kg

DRUGS (2)
  1. MIRALAX [Suspect]
     Indication: CONSTIPATION
     Dosage: 1 CAPFUL IN JUICE OR WATER, QD
     Route: 048
     Dates: start: 201310
  2. MIRALAX [Suspect]
     Indication: BOWEL MOVEMENT IRREGULARITY

REACTIONS (2)
  - Incorrect drug administration duration [Unknown]
  - Product physical issue [Unknown]
